FAERS Safety Report 4319774-3 (Version None)
Quarter: 2004Q1

REPORT INFORMATION
  Report Type: 
  Country: None (occurrence: None)
  Receive Date: 20040319
  Receipt Date: 20040311
  Transmission Date: 20041129
  Serious: Yes (Hospitalization, Disabling)
  Sender: FDA-Public Use
  Company Number: FR-GLAXOSMITHKLINE-B0326485A

PATIENT
  Age: 46 Year
  Sex: Male
  Weight: 70 kg

DRUGS (4)
  1. COMBIVIR [Suspect]
     Indication: HIV INFECTION
     Dosage: 2UNIT PER DAY
     Route: 048
     Dates: start: 20000515
  2. INVIRASE [Suspect]
     Indication: HIV INFECTION
     Dosage: 9UNIT PER DAY
     Route: 048
     Dates: start: 20000515
  3. NORVIR [Suspect]
     Indication: HIV INFECTION
     Dosage: 2UNIT PER DAY
     Route: 048
     Dates: start: 20000515
  4. VIRAMUNE [Suspect]
     Indication: HIV INFECTION
     Dosage: 2UNIT PER DAY
     Route: 048
     Dates: start: 20000515

REACTIONS (3)
  - ARTHRALGIA [None]
  - FEMORAL NECK FRACTURE [None]
  - PATHOLOGICAL FRACTURE [None]
